FAERS Safety Report 7190111-2 (Version None)
Quarter: 2010Q4

REPORT INFORMATION
  Report Type: 
  Country: None (occurrence: None)
  Receive Date: 20101223
  Receipt Date: 20101216
  Transmission Date: 20110411
  Serious: No
  Sender: FDA-Public Use
  Company Number: US-PFIZER INC-2010169337

PATIENT
  Age: 73 Year
  Sex: Female

DRUGS (4)
  1. DETROL [Suspect]
     Dosage: UNK
  2. TOVIAZ [Suspect]
     Dosage: UNK
  3. DITROPAN [Suspect]
     Dosage: UNK
  4. VESICARE [Suspect]
     Dosage: UNK

REACTIONS (2)
  - DRUG INEFFECTIVE [None]
  - DYSURIA [None]
